FAERS Safety Report 20526876 (Version 1)
Quarter: 2022Q1

REPORT INFORMATION
  Report Type: Spontaneous
  Country: CN (occurrence: CN)
  Receive Date: 20220228
  Receipt Date: 20220228
  Transmission Date: 20220423
  Serious: Yes (Other)
  Sender: FDA-Public Use
  Company Number: CN-PFIZER INC-202200299934

PATIENT
  Age: 27 Year
  Sex: Female
  Weight: 50 kg

DRUGS (2)
  1. METHOTREXATE [Suspect]
     Active Substance: METHOTREXATE
     Indication: Ectopic pregnancy
     Dosage: 0.075 G, 1X/DAY
     Route: 030
     Dates: start: 20220128, end: 20220128
  2. METHOTREXATE [Suspect]
     Active Substance: METHOTREXATE
     Indication: Abortion of ectopic pregnancy
     Dosage: 0.075 G, 1X/DAY
     Route: 030
     Dates: start: 20220204, end: 20220204

REACTIONS (3)
  - Liver injury [Recovered/Resolved]
  - Drug-induced liver injury [Recovered/Resolved]
  - Off label use [Unknown]

NARRATIVE: CASE EVENT DATE: 20220128
